FAERS Safety Report 14005644 (Version 2)
Quarter: 2017Q4

REPORT INFORMATION
  Report Type: Other
  Country: US (occurrence: US)
  Receive Date: 20170923
  Receipt Date: 20171219
  Transmission Date: 20180321
  Serious: No
  Sender: FDA-Public Use
  Company Number: US-APOTEX-2017AP015212

PATIENT
  Age: 35 Year
  Sex: Female

DRUGS (1)
  1. CLARISPRAY NASAL ALLERGY [Suspect]
     Active Substance: FLUTICASONE PROPIONATE
     Indication: HYPERSENSITIVITY
     Route: 045

REACTIONS (6)
  - Headache [Unknown]
  - Drug effect incomplete [Unknown]
  - Dizziness [Unknown]
  - Rhinorrhoea [Recovered/Resolved]
  - Dysgeusia [Unknown]
  - Feeling abnormal [Recovered/Resolved]
